FAERS Safety Report 4860625-6 (Version None)
Quarter: 2005Q4

REPORT INFORMATION
  Report Type: 
  Country: None (occurrence: None)
  Receive Date: 20051216
  Receipt Date: 20051118
  Transmission Date: 20060501
  Serious: Yes (Hospitalization)
  Sender: FDA-Public Use
  Company Number: 200513803BCC

PATIENT
  Age: 13 Year
  Sex: Female
  Weight: 88.905 kg

DRUGS (5)
  1. ALEVE [Suspect]
     Indication: GASTROENTERITIS VIRAL
     Dosage: 220 MG, IRR, ORAL
     Route: 048
     Dates: start: 20040401, end: 20040404
  2. ALEVE [Suspect]
     Indication: PAIN
     Dosage: 220 MG, IRR, ORAL
     Route: 048
     Dates: start: 20040401, end: 20040404
  3. ALEVE [Suspect]
     Indication: PYREXIA
     Dosage: 220 MG, IRR, ORAL
     Route: 048
     Dates: start: 20040401, end: 20040404
  4. ACETAMINOPHEN [Suspect]
     Indication: GASTRITIS VIRAL
  5. MOTRIN [Suspect]

REACTIONS (12)
  - DEHYDRATION [None]
  - DIARRHOEA [None]
  - DIZZINESS [None]
  - DYSURIA [None]
  - ERYTHEMA MULTIFORME [None]
  - GAIT DISTURBANCE [None]
  - HALLUCINATION [None]
  - HEADACHE [None]
  - NAUSEA [None]
  - OEDEMA [None]
  - VOMITING [None]
  - WEIGHT DECREASED [None]
